FAERS Safety Report 10717756 (Version 4)
Quarter: 2015Q1

REPORT INFORMATION
  Report Type: Spontaneous
  Country: US (occurrence: US)
  Receive Date: 20150116
  Receipt Date: 20150303
  Transmission Date: 20150721
  Serious: Yes (Other)
  Sender: FDA-Public Use
  Company Number: US-PFIZER INC-2015017378

PATIENT
  Age: 68 Year
  Sex: Male

DRUGS (1)
  1. LATANOPROST. [Suspect]
     Active Substance: LATANOPROST
     Indication: GLAUCOMA
     Dosage: UNK
     Dates: start: 2012

REACTIONS (20)
  - Colour blindness acquired [Unknown]
  - Body height decreased [Not Recovered/Not Resolved]
  - Drug ineffective for unapproved indication [Not Recovered/Not Resolved]
  - Eye disorder [Unknown]
  - Growth of eyelashes [Not Recovered/Not Resolved]
  - Pain [Not Recovered/Not Resolved]
  - Insomnia [Unknown]
  - Product label issue [Unknown]
  - Bone pain [Not Recovered/Not Resolved]
  - Underweight [Not Recovered/Not Resolved]
  - Eyelash thickening [Not Recovered/Not Resolved]
  - Incorrect dose administered [Unknown]
  - Drug dose omission [Unknown]
  - Dry eye [Unknown]
  - Ocular hyperaemia [Not Recovered/Not Resolved]
  - Visual impairment [Unknown]
  - Product packaging issue [Unknown]
  - Intraocular pressure increased [Unknown]
  - Eye pain [Not Recovered/Not Resolved]
  - Accidental exposure to product [Unknown]
